FAERS Safety Report 16533236 (Version 1)
Quarter: 2019Q3

REPORT INFORMATION
  Report Type: Spontaneous
  Country: US (occurrence: US)
  Receive Date: 20190704
  Receipt Date: 20190704
  Transmission Date: 20191004
  Serious: No
  Sender: FDA-Public Use
  Company Number: US-RECKITT BENCKISER HEALTHCARE INT LIMITED-RB-94522-2018

PATIENT
  Age: 86 Year
  Sex: Male

DRUGS (1)
  1. MUCINEX DM MAXIMUM STRENGTH [Suspect]
     Active Substance: DEXTROMETHORPHAN HYDROBROMIDE\GUAIFENESIN
     Indication: PRODUCT USED FOR UNKNOWN INDICATION
     Dosage: 1200 MILLIGRAM (TOOK ONE BY CRUSHING THE TABLET AT AN UNKNOWN FREQUENCY).
     Route: 048
     Dates: start: 201811

REACTIONS (4)
  - Thirst [Not Recovered/Not Resolved]
  - Wrong technique in product usage process [Unknown]
  - Asthenia [Not Recovered/Not Resolved]
  - Product complaint [Unknown]

NARRATIVE: CASE EVENT DATE: 201811
